FAERS Safety Report 15313443 (Version 1)
Quarter: 2018Q3

REPORT INFORMATION
  Report Type: Spontaneous
  Country: US (occurrence: US)
  Receive Date: 20180824
  Receipt Date: 20180824
  Transmission Date: 20181010
  Serious: Yes (Hospitalization)
  Sender: FDA-Public Use
  Company Number: US-ROCHE-2174501

PATIENT
  Sex: Male

DRUGS (3)
  1. ESBRIET [Suspect]
     Active Substance: PIRFENIDONE
     Indication: IDIOPATHIC PULMONARY FIBROSIS
     Dosage: ON DAYS 1?7
     Route: 048
     Dates: start: 20180719
  2. ESBRIET [Suspect]
     Active Substance: PIRFENIDONE
     Dosage: ON DAY 15 ONWARDS
     Route: 048
  3. ESBRIET [Suspect]
     Active Substance: PIRFENIDONE
     Dosage: ON DAY 8?14
     Route: 048

REACTIONS (1)
  - Infection [Unknown]
